FAERS Safety Report 4949569-9 (Version None)
Quarter: 2006Q1

REPORT INFORMATION
  Report Type: 
  Country: None (occurrence: None)
  Receive Date: 20060127
  Receipt Date: 20050202
  Transmission Date: 20060701
  Serious: Yes (Hospitalization)
  Sender: FDA-Public Use
  Company Number: 05-02-0153

PATIENT
  Age: 20 Year
  Sex: Male
  Weight: 60.782 kg

DRUGS (1)
  1. CLOZAPINE [Suspect]
     Dosage: 300-500MG QD, ORAL
     Route: 048
     Dates: start: 20030901, end: 20041001

REACTIONS (2)
  - NO ADVERSE DRUG EFFECT [None]
  - ROAD TRAFFIC ACCIDENT [None]
